FAERS Safety Report 12846779 (Version 2)
Quarter: 2017Q1

REPORT INFORMATION
  Report Type: Spontaneous
  Country: US (occurrence: SG)
  Receive Date: 20161014
  Receipt Date: 20170117
  Transmission Date: 20170428
  Serious: No
  Sender: FDA-Public Use
  Company Number: US-PFIZER INC-2016325122

PATIENT
  Age: 58 Year
  Sex: Female
  Weight: 65.77 kg

DRUGS (21)
  1. LYRICA [Suspect]
     Active Substance: PREGABALIN
     Indication: FIBROMYALGIA
     Dosage: 150 MG, 3X/DAY
     Route: 048
     Dates: start: 2015
  2. SYNTHROID [Concomitant]
     Active Substance: LEVOTHYROXINE SODIUM
     Indication: HYPOTHYROIDISM
     Dosage: 125 UG, DAILY (1 TAB)
     Dates: start: 2001
  3. TOPIRAMATE. [Concomitant]
     Active Substance: TOPIRAMATE
     Dosage: UNK
     Dates: start: 2004
  4. CLONAZEPAM. [Concomitant]
     Active Substance: CLONAZEPAM
     Indication: MYALGIA
  5. CALCIUM [Concomitant]
     Active Substance: CALCIUM
     Dosage: 2000, 1X/DAY (2000)
     Route: 048
     Dates: start: 2010
  6. LYRICA [Suspect]
     Active Substance: PREGABALIN
     Indication: MUSCLE TIGHTNESS
     Dosage: 150 MG, 2X/DAY
     Route: 048
  7. CARISOPRODOL. [Concomitant]
     Active Substance: CARISOPRODOL
     Dosage: UNK
     Dates: start: 2002
  8. WELLBUTRIN [Concomitant]
     Active Substance: BUPROPION HYDROCHLORIDE
     Indication: DEPRESSION
     Dosage: UNK
     Dates: start: 2001
  9. VITAMIN D [Concomitant]
     Active Substance: CHOLECALCIFEROL
     Indication: BLOOD CALCIUM INCREASED
  10. WELLBUTRIN [Concomitant]
     Active Substance: BUPROPION HYDROCHLORIDE
     Indication: OSTEOPENIA
     Dosage: 150 MG, 3X/DAY
     Dates: start: 2000
  11. CARISOPRODOL. [Concomitant]
     Active Substance: CARISOPRODOL
     Indication: MUSCLE SPASMS
     Dosage: 350 MG, 3X/DAY (1 TAB)
     Dates: start: 2001
  12. OXYCODONE [Concomitant]
     Active Substance: OXYCODONE
     Dosage: 5 MG, AS NEEDED (QID PRN)
  13. LYRICA [Suspect]
     Active Substance: PREGABALIN
     Indication: MUSCLE SPASMS
     Dosage: 300 MG, 1X/DAY
  14. SYNTHROID [Concomitant]
     Active Substance: LEVOTHYROXINE SODIUM
     Dosage: UNK
     Dates: start: 2002
  15. CLONAZEPAM. [Concomitant]
     Active Substance: CLONAZEPAM
     Indication: MUSCLE SPASMS
     Dosage: 2.5 MG, AS NEEDED (1-2 OVERNIGHT )
  16. VITAMIN D3 [Concomitant]
     Active Substance: CHOLECALCIFEROL
     Dosage: UNK, 5000 DAILY (5000)
     Dates: start: 2010
  17. OXYCODONE [Concomitant]
     Active Substance: OXYCODONE
     Indication: PAIN
     Dosage: 5 MG, 4X/DAY
  18. OXYCODONE [Concomitant]
     Active Substance: OXYCODONE
     Dosage: UNK
     Dates: start: 2004
  19. TOPIRAMATE. [Concomitant]
     Active Substance: TOPIRAMATE
     Indication: NEURALGIA
     Dosage: 200 MG, 3X/DAY (1 TAB)
     Dates: start: 2003
  20. WELLBUTRIN [Concomitant]
     Active Substance: BUPROPION HYDROCHLORIDE
     Dosage: UNK
     Dates: start: 2002
  21. VITAMIN D [Concomitant]
     Active Substance: CHOLECALCIFEROL
     Indication: VITAMIN D DECREASED
     Dosage: 5000 IU, 1X/DAY
     Dates: start: 2010

REACTIONS (6)
  - Drug dose omission [Recovered/Resolved]
  - Therapeutic response unexpected [Unknown]
  - Anxiety [Recovered/Resolved]
  - Drug ineffective [Not Recovered/Not Resolved]
  - Pre-existing condition improved [Unknown]
  - Tension [Recovered/Resolved]

NARRATIVE: CASE EVENT DATE: 2015
